FAERS Safety Report 4377956-9 (Version None)
Quarter: 2004Q2

REPORT INFORMATION
  Report Type: 
  Country: None (occurrence: None)
  Receive Date: 20040614
  Receipt Date: 20040504
  Transmission Date: 20050107
  Serious: Yes (Death, Hospitalization)
  Sender: FDA-Public Use
  Company Number: 200411798FR

PATIENT
  Age: 71 Year
  Sex: Female

DRUGS (4)
  1. OFLOCET [Suspect]
     Route: 048
     Dates: start: 19950610, end: 19950621
  2. LASILIX [Suspect]
  3. CORDARONE [Suspect]
     Route: 048
  4. DIGOXIN [Suspect]

REACTIONS (4)
  - ALANINE AMINOTRANSFERASE INCREASED [None]
  - ASPARTATE AMINOTRANSFERASE INCREASED [None]
  - RECTAL CANCER [None]
  - THROMBOCYTOPENIA [None]
